FAERS Safety Report 6863804-1 (Version None)
Quarter: 2010Q3

REPORT INFORMATION
  Report Type: 
  Country: None (occurrence: None)
  Receive Date: 20100721
  Receipt Date: 20100708
  Transmission Date: 20110219
  Serious: Yes (Hospitalization, Other)
  Sender: FDA-Public Use
  Company Number: GB-WATSON-2010-09566

PATIENT
  Age: 37 Year
  Sex: Female
  Weight: 61.67 kg

DRUGS (1)
  1. CABERGOLINE [Suspect]
     Indication: HYPERPROLACTINAEMIA
     Dosage: UNK
     Route: 048
     Dates: start: 20061018, end: 20070123

REACTIONS (2)
  - CAESAREAN SECTION [None]
  - COMPLICATION OF DELIVERY [None]
